FAERS Safety Report 8796570 (Version 2)
Quarter: 2015Q2

REPORT INFORMATION
  Report Type: Report from Study
  Country: US (occurrence: US)
  Receive Date: 20120920
  Receipt Date: 20150630
  Transmission Date: 20150821
  Serious: Yes (Death)
  Sender: FDA-Public Use
  Company Number: US-ROCHE-1104240

PATIENT
  Age: 69 Year
  Sex: Female

DRUGS (27)
  1. DECADRON [Concomitant]
     Active Substance: DEXAMETHASONE
     Route: 065
  2. AREDIA [Concomitant]
     Active Substance: PAMIDRONATE DISODIUM
     Route: 065
  3. TAXOL [Concomitant]
     Active Substance: PACLITAXEL
     Dosage: IN 500 ML NORMAL SALINE
     Route: 042
  4. PLAQUENIL [Concomitant]
     Active Substance: HYDROXYCHLOROQUINE SULFATE
     Route: 065
  5. COUMADINE [Concomitant]
     Active Substance: WARFARIN SODIUM
     Route: 065
  6. LEUKINE [Suspect]
     Active Substance: SARGRAMOSTIM
     Indication: PRODUCT USED FOR UNKNOWN INDICATION
     Dosage: FOR 4 DAYS AFTER EACH TREATMENT EACH WEEK
     Route: 058
  7. FOLTX [Concomitant]
     Active Substance: CYANOCOBALAMIN CO-57\FOLIC ACID\PYRIDOXINE HYDROCHLORIDE
  8. BENADRYL ALLERGY (UNITED STATES) [Concomitant]
     Route: 048
  9. BENADRYL ALLERGY (UNITED STATES) [Concomitant]
     Dosage: IN 100ML NORMAL SALINE
     Route: 042
  10. PROCRIT [Concomitant]
     Active Substance: ERYTHROPOIETIN
     Dosage: DOSE: 40000 UNITS
     Route: 065
  11. AMOXICILLIN. [Concomitant]
     Active Substance: AMOXICILLIN
     Indication: RESPIRATORY TRACT INFECTION
  12. SOLU-MEDROL [Concomitant]
     Active Substance: METHYLPREDNISOLONE SODIUM SUCCINATE
     Route: 042
  13. CARBOPLATIN. [Suspect]
     Active Substance: CARBOPLATIN
     Indication: PRODUCT USED FOR UNKNOWN INDICATION
     Dosage: IN 500 ML NORMAL SALINE
     Route: 042
  14. COMPAZINE [Concomitant]
     Active Substance: PROCHLORPERAZINE MALEATE
     Route: 042
  15. GRANISETRON [Concomitant]
     Active Substance: GRANISETRON
     Dosage: 100 ML NORMAL SALINE
     Route: 042
  16. TAGAMET [Concomitant]
     Active Substance: CIMETIDINE
     Dosage: 100 ML NORMAL SALINE
     Route: 042
  17. LEXAPRO [Concomitant]
     Active Substance: ESCITALOPRAM OXALATE
     Route: 065
  18. AMBIEN [Concomitant]
     Active Substance: ZOLPIDEM TARTRATE
  19. DILAUDID [Concomitant]
     Active Substance: HYDROMORPHONE HYDROCHLORIDE
     Route: 065
  20. PREDNISONE. [Concomitant]
     Active Substance: PREDNISONE
     Route: 065
  21. AVASTIN [Suspect]
     Active Substance: BEVACIZUMAB
     Indication: BREAST CANCER FEMALE
     Dosage: IN 100 ML NORMAL SALINE
     Route: 042
     Dates: start: 20050926
  22. FASLODEX [Suspect]
     Active Substance: FULVESTRANT
     Indication: PRODUCT USED FOR UNKNOWN INDICATION
     Route: 030
  23. BENADRYL ALLERGY (UNITED STATES) [Concomitant]
     Route: 048
  24. HEPARIN [Concomitant]
     Active Substance: HEPARIN SODIUM
     Dosage: DOSE: 500 UNITS
     Route: 042
  25. VITAMIN B12 [Concomitant]
     Active Substance: CYANOCOBALAMIN
  26. PREDNISONE. [Concomitant]
     Active Substance: PREDNISONE
     Route: 065
  27. TYLENOL [Concomitant]
     Active Substance: ACETAMINOPHEN
     Route: 048

REACTIONS (21)
  - Malaise [Unknown]
  - Neuropathy peripheral [Unknown]
  - Upper respiratory tract congestion [Unknown]
  - Nausea [Unknown]
  - Death [Fatal]
  - Upper respiratory tract infection [Unknown]
  - Hot flush [Unknown]
  - Stomatitis [Unknown]
  - Anxiety [Unknown]
  - Off label use [Unknown]
  - Lymphadenopathy [Unknown]
  - Fatigue [Unknown]
  - Epistaxis [Unknown]
  - Depression [Unknown]
  - Night sweats [Unknown]
  - Pyrexia [Unknown]
  - Generalised erythema [Unknown]
  - Asthenia [Unknown]
  - Back pain [Unknown]
  - Ecchymosis [Unknown]
  - Protein urine [Unknown]

NARRATIVE: CASE EVENT DATE: 20060116
